FAERS Safety Report 6801607-4 (Version None)
Quarter: 2010Q2

REPORT INFORMATION
  Report Type: 
  Country: None (occurrence: None)
  Receive Date: 20100629
  Receipt Date: 20100622
  Transmission Date: 20101027
  Serious: Yes (Death, Hospitalization)
  Sender: FDA-Public Use
  Company Number: US-SANOFI-AVENTIS-A03200700031

PATIENT
  Age: 53 Year
  Sex: Male
  Weight: 120.2 kg

DRUGS (7)
  1. CLOPIDOGREL BISULFATE [Suspect]
     Dosage: UNIT DOSE: 75 MG
     Route: 048
     Dates: start: 20050901
  2. ASPIRIN [Suspect]
     Route: 048
     Dates: start: 20050901
  3. COUMADIN [Concomitant]
     Indication: CARDIAC DISORDER
  4. COREG [Concomitant]
  5. ALTACE [Concomitant]
  6. FAMOTIDINE [Concomitant]
  7. NIASPAN [Concomitant]

REACTIONS (4)
  - ARTERIOSCLEROSIS [None]
  - INFLUENZA LIKE ILLNESS [None]
  - OFF LABEL USE [None]
  - THROMBOTIC THROMBOCYTOPENIC PURPURA [None]
